FAERS Safety Report 21540297 (Version 1)
Quarter: 2022Q4

REPORT INFORMATION
  Report Type: Spontaneous
  Country: CN (occurrence: None)
  Receive Date: 20221102
  Receipt Date: 20221102
  Transmission Date: 20230113
  Serious: Yes (Other)
  Sender: FDA-Public Use
  Company Number: CN-ROCHE-3208189

PATIENT
  Age: 61 Year
  Sex: Female
  Weight: 67 kg

DRUGS (3)
  1. HERCEPTIN [Suspect]
     Active Substance: TRASTUZUMAB
     Indication: Breast cancer
     Route: 041
     Dates: start: 20220823, end: 20220823
  2. PERJETA [Suspect]
     Active Substance: PERTUZUMAB
     Indication: Breast cancer
     Route: 065
     Dates: start: 20220823, end: 20220823
  3. PACLITAXEL [Concomitant]
     Active Substance: PACLITAXEL
     Indication: Breast cancer
     Dates: start: 20220823, end: 20220823

REACTIONS (5)
  - Pyrexia [Recovered/Resolved]
  - Dizziness [Recovered/Resolved]
  - Nausea [Recovered/Resolved]
  - Blood pressure increased [Recovered/Resolved]
  - Temperature intolerance [Recovered/Resolved]

NARRATIVE: CASE EVENT DATE: 20220823
